FAERS Safety Report 14918443 (Version 1)
Quarter: 2018Q2

REPORT INFORMATION
  Report Type: Spontaneous
  Country: US (occurrence: US)
  Receive Date: 20180521
  Receipt Date: 20180521
  Transmission Date: 20180711
  Serious: Yes (Hospitalization)
  Sender: FDA-Public Use
  Company Number: US-NORTHSTAR HEALTHCARE HOLDINGS-US-2016NSR000771

PATIENT
  Age: 24 Year
  Sex: Male

DRUGS (5)
  1. SERTRALINE [Suspect]
     Active Substance: SERTRALINE HYDROCHLORIDE
     Indication: PRODUCT USED FOR UNKNOWN INDICATION
     Dosage: 50 MG, UNK
  2. BACLOFEN. [Suspect]
     Active Substance: BACLOFEN
     Indication: MUSCLE SPASTICITY
     Dosage: 75.10 ?G, QD
     Route: 037
  3. BACLOFEN. [Suspect]
     Active Substance: BACLOFEN
     Dosage: 98.04 ?G, QD (DOSE INCREASED BY 30.5%)
     Route: 037
  4. SERTRALINE [Suspect]
     Active Substance: SERTRALINE HYDROCHLORIDE
     Dosage: 100 MG, UNK
  5. BACLOFEN. [Suspect]
     Active Substance: BACLOFEN
     Dosage: UNK, DECREASED TO PRIOR DOSAGE

REACTIONS (1)
  - Substance-induced psychotic disorder [Recovered/Resolved]
